FAERS Safety Report 7194839-X (Version None)
Quarter: 2010Q4

REPORT INFORMATION
  Report Type: 
  Country: None (occurrence: None)
  Receive Date: 20101223
  Receipt Date: 20100920
  Transmission Date: 20110411
  Serious: No
  Sender: FDA-Public Use
  Company Number: US-AMGEN-TCS439497

PATIENT

DRUGS (9)
  1. ENBREL [Suspect]
     Indication: RHEUMATOID ARTHRITIS
     Dosage: 50 MG, QWK
     Route: 058
     Dates: start: 20100610
  2. METHOTREXATE [Concomitant]
     Dosage: UNK UNK, UNK
  3. FOLIC ACID [Concomitant]
     Dosage: 1 MG, UNK
  4. DULOXETIME HYDROCHLORIDE [Concomitant]
     Dosage: 60 MG, UNK
  5. CYANOCOBALAMIN [Concomitant]
     Dosage: UNK UNK, UNK
  6. GABAPENTIN [Concomitant]
     Dosage: 100 MG, UNK
  7. FOLINIC ACID [Concomitant]
     Dosage: 5 MG, UNK
  8. LEVOTHYROXINE SODIUM [Concomitant]
     Dosage: 125 A?G, UNK
  9. ESTRADIOL [Concomitant]
     Dosage: .5 MG, QD

REACTIONS (1)
  - VISION BLURRED [None]
